FAERS Safety Report 15486353 (Version 2)
Quarter: 2018Q4

REPORT INFORMATION
  Report Type: Report from Study
  Country: EG (occurrence: EG)
  Receive Date: 20181011
  Receipt Date: 20181113
  Transmission Date: 20190205
  Serious: Yes (Hospitalization)
  Sender: FDA-Public Use
  Company Number: EG-EMD SERONO-9046382

PATIENT
  Age: 28 Year
  Sex: Male

DRUGS (1)
  1. REBIF [Suspect]
     Active Substance: INTERFERON BETA-1A
     Indication: MULTIPLE SCLEROSIS
     Dates: start: 2003

REACTIONS (6)
  - Extra dose administered [Unknown]
  - Multiple sclerosis relapse [Unknown]
  - Pain [Unknown]
  - Intentional product misuse [Unknown]
  - Tension [Unknown]
  - Blood pressure abnormal [Unknown]

NARRATIVE: CASE EVENT DATE: 201806
